FAERS Safety Report 9535067 (Version 8)
Quarter: 2013Q4

REPORT INFORMATION
  Report Type: Spontaneous
  Country: US (occurrence: US)
  Receive Date: 20130918
  Receipt Date: 20131209
  Transmission Date: 20140711
  Serious: No
  Sender: FDA-Public Use
  Company Number: US-VERTEX PHARMACEUTICALS INC-2013-009537

PATIENT
  Age: 59 Year
  Sex: Female
  Weight: 67 kg

DRUGS (14)
  1. INCIVEK [Suspect]
     Indication: HEPATITIS C
     Dosage: 750 MG, TID
     Route: 048
     Dates: start: 20130910, end: 20131115
  2. PEGASYS [Suspect]
     Indication: HEPATITIS C
     Dosage: 180 ?G, QW
     Route: 058
     Dates: start: 20130910
  3. RIBAVIRIN [Suspect]
     Indication: HEPATITIS C
     Dosage: 400 MG AM, 600 MG PM
     Route: 048
     Dates: start: 20130910
  4. RIBAVIRIN [Suspect]
     Dosage: 200 MG AM, 400 MG PM
     Route: 048
     Dates: start: 201310, end: 201311
  5. RIBAVIRIN [Suspect]
     Dosage: 400 MG, BID
     Route: 048
  6. AMITRIPTYLINE [Concomitant]
     Indication: SLEEP DISORDER
     Dosage: 10 MG, UNK
     Route: 048
  7. AMITRIPTYLINE [Concomitant]
     Dosage: 20 MG, UNK
     Route: 048
  8. ASPIRIN [Concomitant]
     Dosage: 81 MG, QD
     Route: 048
  9. VALTREX [Concomitant]
     Dosage: 500 MG, BID, PRN
     Route: 048
  10. XANAX [Concomitant]
     Dosage: 0.25 MG, BID, PRN
     Route: 048
  11. ESTRACE VAGINAL [Concomitant]
     Dosage: 0.5 G, TWICE A WEEK
     Route: 067
  12. ONDANSETRON [Concomitant]
     Dosage: 4 MG, TID
     Route: 048
  13. LOTRISONE [Concomitant]
  14. VITAMIN D [Concomitant]

REACTIONS (28)
  - Drug dose omission [Recovered/Resolved]
  - Dyspnoea [Not Recovered/Not Resolved]
  - Influenza like illness [Not Recovered/Not Resolved]
  - Depressed mood [Unknown]
  - Sleep disorder [Recovered/Resolved]
  - Glomerular filtration rate increased [Unknown]
  - Decreased appetite [Not Recovered/Not Resolved]
  - Chills [Not Recovered/Not Resolved]
  - Malaise [Not Recovered/Not Resolved]
  - Constipation [Not Recovered/Not Resolved]
  - Abdominal distension [Not Recovered/Not Resolved]
  - Flatulence [Not Recovered/Not Resolved]
  - Injection site rash [Not Recovered/Not Resolved]
  - Injection site erythema [Not Recovered/Not Resolved]
  - Dry mouth [Not Recovered/Not Resolved]
  - Blood uric acid abnormal [Unknown]
  - White blood cell count decreased [Not Recovered/Not Resolved]
  - Blood thyroid stimulating hormone increased [Not Recovered/Not Resolved]
  - Rash pruritic [Not Recovered/Not Resolved]
  - Rash [Recovered/Resolved]
  - Dermatitis [Unknown]
  - Red blood cell count decreased [Not Recovered/Not Resolved]
  - Platelet count decreased [Unknown]
  - Anaemia [Unknown]
  - Nausea [Recovered/Resolved]
  - Pruritus [Not Recovered/Not Resolved]
  - Headache [Recovered/Resolved]
  - Fatigue [Not Recovered/Not Resolved]
